FAERS Safety Report 4894494-5 (Version None)
Quarter: 2006Q1

REPORT INFORMATION
  Report Type: 
  Country: None (occurrence: None)
  Receive Date: 20060124
  Receipt Date: 20060105
  Transmission Date: 20060701
  Serious: Yes (Hospitalization, Other)
  Sender: FDA-Public Use
  Company Number: TRP_0453_2005

PATIENT
  Age: 38 Year
  Sex: Male
  Weight: 50.8029 kg

DRUGS (8)
  1. RIBASPHERE [Suspect]
     Indication: HEPATITIS C
     Dosage: 800 MG QDAY PO
     Route: 048
     Dates: start: 20050101, end: 20050301
  2. PEG-INTRON [Suspect]
     Indication: HEPATITIS C
     Dosage: 80 MCG QWK SC
     Route: 058
     Dates: start: 20050101, end: 20050301
  3. RIBASPHERE [Suspect]
     Indication: HEPATITIS C
     Dosage: 800 MG QDAY PO
     Route: 048
     Dates: start: 20050715, end: 20050922
  4. PEG-INTRON [Suspect]
     Indication: HEPATITIS C
     Dosage: 80 MCG QWK SC
     Route: 058
     Dates: start: 20050715, end: 20050922
  5. PAXIL [Concomitant]
  6. ACETAMINOPHEN AND HYDROCODONE BITARTRATE [Concomitant]
  7. TEMAZEPAM [Concomitant]
  8. VALIUM [Concomitant]

REACTIONS (20)
  - ANAEMIA [None]
  - ATELECTASIS [None]
  - BLOOD PRESSURE DECREASED [None]
  - BLOOD SODIUM DECREASED [None]
  - BONE MARROW FAILURE [None]
  - CACHEXIA [None]
  - EMPYEMA [None]
  - ENCEPHALOPATHY [None]
  - HYPOVOLAEMIA [None]
  - LOBAR PNEUMONIA [None]
  - NEUTROPENIA [None]
  - PLEURAL EFFUSION [None]
  - PNEUMOCOCCAL SEPSIS [None]
  - PNEUMONIA PNEUMOCOCCAL [None]
  - PNEUMOTHORAX [None]
  - RENAL FAILURE [None]
  - SINUS TACHYCARDIA [None]
  - STREPTOCOCCAL INFECTION [None]
  - THROMBOCYTOPENIA [None]
  - TOOTH EXTRACTION [None]
